FAERS Safety Report 5903939-0 (Version None)
Quarter: 2008Q3

REPORT INFORMATION
  Report Type: 
  Country: None (occurrence: None)
  Receive Date: 20080930
  Receipt Date: 20080917
  Transmission Date: 20090109
  Serious: Yes (Other)
  Sender: FDA-Public Use
  Company Number: AE-ELI_LILLY_AND_COMPANY-AE200809004580

PATIENT
  Age: 6 Year
  Weight: 20 kg

DRUGS (2)
  1. ATOMOXETINE HCL [Suspect]
     Indication: ATTENTION DEFICIT/HYPERACTIVITY DISORDER
     Dosage: 10 MG, UNKNOWN
     Route: 048
     Dates: start: 20080801, end: 20080101
  2. ATOMOXETINE HCL [Suspect]
     Dosage: 20 MG, DAILY (1/D)
     Route: 048
     Dates: start: 20080101, end: 20080915

REACTIONS (2)
  - IRRITABILITY [None]
  - PSYCHOMOTOR HYPERACTIVITY [None]
